FAERS Safety Report 14451380 (Version 1)
Quarter: 2018Q1

REPORT INFORMATION
  Report Type: Spontaneous
  Country: US (occurrence: US)
  Receive Date: 20180126
  Receipt Date: 20180126
  Transmission Date: 20180509
  Serious: Yes (Hospitalization)
  Sender: FDA-Public Use
  Company Number: None

PATIENT
  Age: 64 Year
  Sex: Male

DRUGS (8)
  1. TACROLIMUS 0.5MG [Suspect]
     Active Substance: TACROLIMUS
     Indication: RENAL TRANSPLANT
     Route: 048
     Dates: start: 20150905
  2. METOPROLOL. [Concomitant]
     Active Substance: METOPROLOL
  3. TACROLIMUS  1MG [Suspect]
     Active Substance: TACROLIMUS
     Indication: RENAL TRANSPLANT
     Route: 048
     Dates: start: 20150905
  4. LISINOPRIL. [Concomitant]
     Active Substance: LISINOPRIL
  5. PAROXETINE. [Concomitant]
     Active Substance: PAROXETINE
  6. PREDNISONE. [Concomitant]
     Active Substance: PREDNISONE
  7. MYCOPHENOLATE [Concomitant]
     Active Substance: MYCOPHENOLIC ACID
  8. GABAPENTIN. [Concomitant]
     Active Substance: GABAPENTIN

REACTIONS (3)
  - Central nervous system viral infection [None]
  - Drug dose omission [None]
  - Sinusitis [None]

NARRATIVE: CASE EVENT DATE: 201801
